FAERS Safety Report 8832342 (Version 2)
Quarter: 2012Q4

REPORT INFORMATION
  Report Type: Report from Study
  Country: US (occurrence: US)
  Receive Date: 20121009
  Receipt Date: 20121022
  Transmission Date: 20130627
  Serious: Yes (Other)
  Sender: FDA-Public Use
  Company Number: US-BAXTER-2012BAX018951

PATIENT
  Age: 59 Year
  Sex: Female

DRUGS (2)
  1. GAMMAGARD LIQUID [Suspect]
     Indication: IGG DECREASED
     Route: 058
  2. GAMMAGARD LIQUID [Suspect]
     Route: 058
     Dates: start: 20120919, end: 20120919

REACTIONS (5)
  - Upper respiratory tract infection [Recovered/Resolved]
  - Paranasal sinus hypersecretion [Recovered/Resolved]
  - Chest pain [Recovered/Resolved]
  - Dyspnoea [Recovered/Resolved]
  - Chest discomfort [Recovered/Resolved]
